FAERS Safety Report 8973482 (Version 2)
Quarter: 2014Q3

REPORT INFORMATION
  Report Type: Spontaneous
  Country: US (occurrence: US)
  Receive Date: 20121218
  Receipt Date: 20140908
  Transmission Date: 20150326
  Serious: No
  Sender: FDA-Public Use
  Company Number: US-BRISTOL-MYERS SQUIBB COMPANY-16824203

PATIENT
  Age: 57 Year
  Sex: Female
  Weight: 86.17 kg

DRUGS (5)
  1. ABILIFY [Suspect]
     Active Substance: ARIPIPRAZOLE
     Indication: PANIC ATTACK
     Dosage: ABILIFY 20MG ?1DF: CUTS INTO HALF?DOSE INCREASED IN JUL13 TO 10MG
     Route: 048
     Dates: start: 20120126
  2. ABILIFY [Suspect]
     Active Substance: ARIPIPRAZOLE
     Indication: DEPRESSION
     Dosage: ABILIFY 20MG ?1DF: CUTS INTO HALF?DOSE INCREASED IN JUL13 TO 10MG
     Route: 048
     Dates: start: 20120126
  3. KLONOPIN [Concomitant]
     Active Substance: CLONAZEPAM
     Dosage: 1DF: 2TABS?KLONOPIN 0.5MG
  4. LEXAPRO [Concomitant]
     Active Substance: ESCITALOPRAM OXALATE
  5. CELEXA [Concomitant]
     Active Substance: CITALOPRAM HYDROBROMIDE

REACTIONS (4)
  - Diarrhoea [Recovered/Resolved]
  - Drug dose omission [Unknown]
  - Wrong technique in drug usage process [Unknown]
  - Drug dispensing error [Unknown]

NARRATIVE: CASE EVENT DATE: 20130710
